FAERS Safety Report 7786046-4 (Version None)
Quarter: 2011Q3

REPORT INFORMATION
  Report Type: 
  Country: None (occurrence: None)
  Receive Date: 20110929
  Receipt Date: 20110916
  Transmission Date: 20111222
  Serious: Yes (Hospitalization, Other)
  Sender: FDA-Public Use
  Company Number: US-ELI_LILLY_AND_COMPANY-US201109004802

PATIENT
  Sex: Female

DRUGS (2)
  1. ANTIBIOTICS [Concomitant]
     Dosage: UNK, UNKNOWN
     Route: 065
  2. FORTEO [Suspect]
     Indication: OSTEOPOROSIS
     Dosage: UNK

REACTIONS (8)
  - URINARY TRACT INFECTION [None]
  - PAIN [None]
  - POST PROCEDURAL DISCHARGE [None]
  - GALLBLADDER DISORDER [None]
  - NAUSEA [None]
  - SINUS TACHYCARDIA [None]
  - WHITE BLOOD CELL COUNT ABNORMAL [None]
  - PANCREATOLITHIASIS [None]
